FAERS Safety Report 9217121 (Version 1)
Quarter: 2013Q2

REPORT INFORMATION
  Report Type: Report from Study
  Country: CA (occurrence: CA)
  Receive Date: 20130408
  Receipt Date: 20130408
  Transmission Date: 20140414
  Serious: Yes (Other)
  Sender: FDA-Public Use
  Company Number: CA-JNJFOC-20130400855

PATIENT
  Age: 59 Year
  Sex: Male
  Weight: 106 kg

DRUGS (10)
  1. REMICADE [Suspect]
     Indication: ANKYLOSING SPONDYLITIS
     Dosage: EVERY 4 TO 5 WEEKS
     Route: 042
     Dates: start: 2004
  2. METHOTREXATE [Concomitant]
     Indication: ANKYLOSING SPONDYLITIS
     Route: 048
     Dates: start: 2001
  3. FOLIC ACID [Concomitant]
     Indication: ANKYLOSING SPONDYLITIS
     Dosage: ONE TABLET ONCE A DAY EXCEPT METHOTREXATE DAY
     Route: 065
     Dates: start: 2001
  4. CALCIUM+VITAMIN D [Concomitant]
     Indication: PROPHYLAXIS
     Route: 065
     Dates: start: 2002
  5. CITALOPRAM [Concomitant]
     Indication: AFFECTIVE DISORDER
     Route: 048
     Dates: start: 2010
  6. TRAVATAN [Concomitant]
     Indication: GLAUCOMA
     Dosage: ONE DROP INTO ECH EYE AT BEDTIME
     Route: 065
     Dates: start: 2008
  7. SYMBICORT [Concomitant]
     Indication: ASTHMA
     Dosage: ONE TO TWO PUFFS TWICE DAILY
     Route: 065
     Dates: start: 2010
  8. NASONEX [Concomitant]
     Indication: HYPERSENSITIVITY
     Dosage: 2 SPRAY(S) IN EACH NOSTRIL
     Route: 065
     Dates: start: 2010
  9. VENTOLIN [Concomitant]
     Indication: ASTHMA
     Dosage: 200 MCG, ONE PUFF THREE TIMES DAILY AS NEEDED
     Route: 065
     Dates: start: 2011
  10. LAMISIL [Concomitant]
     Indication: ONYCHOMYCOSIS
     Route: 048
     Dates: start: 201102, end: 201208

REACTIONS (3)
  - Fall [Recovering/Resolving]
  - Developmental hip dysplasia [Recovering/Resolving]
  - Contusion [Recovering/Resolving]
